FAERS Safety Report 11829127 (Version 1)
Quarter: 2015Q4

REPORT INFORMATION
  Report Type: Spontaneous
  Country: US (occurrence: US)
  Receive Date: 20151211
  Receipt Date: 20151211
  Transmission Date: 20160305
  Serious: No
  Sender: FDA-Public Use
  Company Number: US-MMM-NJ4BYVC3

PATIENT
  Age: 46 Year
  Sex: Female

DRUGS (1)
  1. KYBELLA [Suspect]
     Active Substance: DEOXYCHOLIC ACID
     Indication: PRODUCT USED FOR UNKNOWN INDICATION
     Dates: start: 20151028, end: 20151028

REACTIONS (1)
  - Pain in jaw [Recovered/Resolved with Sequelae]

NARRATIVE: CASE EVENT DATE: 20151028
